FAERS Safety Report 5407540-7 (Version None)
Quarter: 2007Q3

REPORT INFORMATION
  Report Type: 
  Country: None (occurrence: None)
  Receive Date: 20070803
  Receipt Date: 20070726
  Transmission Date: 20080115
  Serious: Yes (Other)
  Sender: FDA-Public Use
  Company Number: 07H-083-0312938-00

PATIENT

DRUGS (3)
  1. VANCOMYCIN HCL [Suspect]
     Indication: SYSTEMIC ANTIBACTERIAL THERAPY
  2. PHENOBARBITAL TAB [Suspect]
     Indication: EPILEPSY
  3. CIPROFLOXACIN [Suspect]
     Indication: SYSTEMIC ANTIBACTERIAL THERAPY

REACTIONS (1)
  - TOXIC EPIDERMAL NECROLYSIS [None]
